FAERS Safety Report 7789709 (Version 2)
Quarter: 2013Q1

REPORT INFORMATION
  Report Type: Report from Study
  Country: US (occurrence: US)
  Receive Date: 20110130
  Receipt Date: 20130129
  Transmission Date: 20140127
  Serious: No
  Sender: FDA-Public Use
  Company Number: US-ABBOTT-10P-163-0683670-00

PATIENT
  Age: 18 None
  Sex: Male
  Weight: 88.53 kg

DRUGS (1)
  1. HUMIRA 40 MG/0.8 ML PEN [Suspect]
     Indication: CROHN^S DISEASE
     Route: 058
     Dates: start: 201008

REACTIONS (7)
  - Device malfunction [Unknown]
  - Injection site vesicles [Recovered/Resolved]
  - Influenza like illness [Unknown]
  - Hypersensitivity [Recovered/Resolved]
  - Injection site mass [Recovered/Resolved]
  - Injection site rash [Recovered/Resolved]
  - Incorrect dose administered [Unknown]
